FAERS Safety Report 7806776-5 (Version None)
Quarter: 2011Q4

REPORT INFORMATION
  Report Type: 
  Country: None (occurrence: None)
  Receive Date: 20111011
  Receipt Date: 20111003
  Transmission Date: 20120403
  Serious: Yes (Hospitalization)
  Sender: FDA-Public Use
  Company Number: FR-JNJFOC-20110709779

PATIENT
  Sex: Male
  Weight: 60 kg

DRUGS (22)
  1. MEGACE [Concomitant]
     Indication: PRODUCT USED FOR UNKNOWN INDICATION
     Route: 048
  2. ABIRATERONE ACETATE [Suspect]
     Indication: PROSTATE CANCER
     Route: 048
     Dates: start: 20110523
  3. PAROXETINE HCL [Concomitant]
     Indication: ANXIETY
     Route: 048
  4. MORPHINE SULFATE [Concomitant]
     Indication: PAIN
     Route: 048
     Dates: start: 20110401
  5. LEXOMIL [Concomitant]
     Indication: ANXIETY
     Dosage: A FOURTH TABLET ON THE MORNING
     Route: 048
     Dates: start: 20110617, end: 20110617
  6. OMEPRAZOLE [Concomitant]
     Indication: GASTROOESOPHAGEAL REFLUX DISEASE
     Route: 048
     Dates: start: 20110622
  7. POLYETHYLENE GLYCOL [Concomitant]
     Indication: CONSTIPATION
     Route: 048
     Dates: start: 20110616
  8. ACETAMINOPHEN [Concomitant]
     Indication: PAIN
     Route: 042
     Dates: start: 20110615, end: 20110619
  9. PREDNISOLONE [Suspect]
     Indication: PROSTATE CANCER
     Route: 048
     Dates: start: 20110614, end: 20110615
  10. PREDNISOLONE [Suspect]
     Route: 048
     Dates: start: 20110623, end: 20110718
  11. PREDNISOLONE [Suspect]
     Route: 048
  12. BICARBONATE [Concomitant]
     Indication: PRODUCT USED FOR UNKNOWN INDICATION
     Route: 048
  13. ACETAMINOPHEN [Concomitant]
     Indication: PRODUCT USED FOR UNKNOWN INDICATION
     Route: 048
  14. LOVENOX [Concomitant]
     Indication: PRODUCT USED FOR UNKNOWN INDICATION
     Route: 058
     Dates: start: 20110622
  15. ABIRATERONE ACETATE [Suspect]
     Route: 048
  16. MORPHINE SULFATE [Concomitant]
     Route: 048
     Dates: start: 20110201, end: 20110615
  17. SOLU-MEDROL [Concomitant]
     Indication: PROSTATE CANCER
     Route: 042
     Dates: start: 20110615, end: 20110622
  18. PREDNISONE [Suspect]
     Indication: PROSTATE CANCER
     Route: 048
  19. PREDNISOLONE [Suspect]
     Route: 048
  20. MORPHINE SULFATE [Concomitant]
     Indication: PAIN
     Route: 048
     Dates: start: 20110615
  21. LASIX [Concomitant]
     Indication: PRODUCT USED FOR UNKNOWN INDICATION
     Route: 048
  22. PAROXETINE HCL [Concomitant]
     Route: 048
     Dates: start: 20110615, end: 20110622

REACTIONS (7)
  - DECREASED APPETITE [None]
  - ASTHENIA [None]
  - PAIN IN EXTREMITY [None]
  - RENAL FAILURE ACUTE [None]
  - GENERAL PHYSICAL HEALTH DETERIORATION [None]
  - BACK PAIN [None]
  - MUSCULAR WEAKNESS [None]
